FAERS Safety Report 25592395 (Version 6)
Quarter: 2025Q4

REPORT INFORMATION
  Report Type: Spontaneous
  Country: CA (occurrence: CA)
  Receive Date: 20250722
  Receipt Date: 20251113
  Transmission Date: 20260118
  Serious: Yes (Other)
  Sender: PFIZER
  Company Number: CA-PFIZER INC-202500034565

PATIENT
  Age: 38 Year
  Sex: Female
  Weight: 113 kg

DRUGS (7)
  1. IXIFI [Suspect]
     Active Substance: INFLIXIMAB-QBTX
     Indication: Crohn^s disease
     Dosage: 600 MG EVERY 4 WEEKS
     Route: 042
     Dates: start: 20250604
  2. IXIFI [Suspect]
     Active Substance: INFLIXIMAB-QBTX
     Dosage: 600 MG 6 WEEKS 2 DAYS (EVERY 4 WEEKS)
     Route: 042
     Dates: start: 20250718
  3. IXIFI [Suspect]
     Active Substance: INFLIXIMAB-QBTX
     Dosage: 600 MG, EVERY 4 WEEKS
     Route: 042
     Dates: start: 20250815
  4. IXIFI [Suspect]
     Active Substance: INFLIXIMAB-QBTX
     Dosage: 600 MG, EVERY 4 WEEKS
     Route: 042
     Dates: start: 20250912
  5. IXIFI [Suspect]
     Active Substance: INFLIXIMAB-QBTX
     Dosage: 600 MG, EVERY 4 WEEKS
     Route: 042
     Dates: start: 20251010
  6. IXIFI [Suspect]
     Active Substance: INFLIXIMAB-QBTX
     Dosage: 600 MG, EVERY 4 WEEKS
     Route: 042
     Dates: start: 20251107
  7. SULFASALAZINE [Concomitant]
     Active Substance: SULFASALAZINE
     Dosage: 6 DF, DAILY
     Route: 065

REACTIONS (6)
  - Fistula [Recovered/Resolved]
  - Condition aggravated [Recovering/Resolving]
  - Anxiety [Unknown]
  - Aphthous ulcer [Not Recovered/Not Resolved]
  - Hidradenitis [Unknown]
  - Off label use [Unknown]

NARRATIVE: CASE EVENT DATE: 20250101
